FAERS Safety Report 6626627-4 (Version None)
Quarter: 2010Q1

REPORT INFORMATION
  Report Type: 
  Country: None (occurrence: None)
  Receive Date: 20100309
  Receipt Date: 20100309
  Transmission Date: 20100710
  Serious: Yes (Hospitalization)
  Sender: FDA-Public Use
  Company Number: None

PATIENT
  Sex: Male
  Weight: 89 kg

DRUGS (6)
  1. SODIUM STIBOGLUCONATE [Suspect]
     Indication: METASTATIC MALIGNANT MELANOMA
     Dosage: 2400MG D1-4 IV DRIP
     Route: 041
     Dates: start: 20100208, end: 20100211
  2. SSG [Concomitant]
  3. INTRON A [Concomitant]
  4. CISPLATIN [Concomitant]
  5. VINBLASTINE [Concomitant]
  6. DACARBAZINE [Concomitant]

REACTIONS (5)
  - DEHYDRATION [None]
  - ELECTROLYTE IMBALANCE [None]
  - FEBRILE NEUTROPENIA [None]
  - NAUSEA [None]
  - VOMITING [None]
